FAERS Safety Report 19898455 (Version 5)
Quarter: 2021Q4

REPORT INFORMATION
  Report Type: Report from Study
  Country: US (occurrence: US)
  Receive Date: 20210930
  Receipt Date: 20211123
  Transmission Date: 20220303
  Serious: Yes (Hospitalization)
  Sender: FDA-Public Use
  Company Number: US-GLOBAL BLOOD THERAPEUTICS INC-US-GBT-21-03352

PATIENT
  Age: 30 Year
  Sex: Male

DRUGS (14)
  1. OXBRYTA [Suspect]
     Active Substance: VOXELOTOR
     Indication: Sickle cell disease
     Dates: start: 20200903, end: 20210415
  2. OXBRYTA [Suspect]
     Active Substance: VOXELOTOR
     Dates: start: 20210415
  3. NORVASC [Concomitant]
     Active Substance: AMLODIPINE BESYLATE
     Indication: Product used for unknown indication
     Route: 048
     Dates: start: 20180622
  4. TENORMIN [Concomitant]
     Active Substance: ATENOLOL
     Indication: Product used for unknown indication
     Route: 048
     Dates: start: 20181130
  5. CALCITRIOL (ROLCALTROL) [Concomitant]
     Indication: Renal disorder
     Route: 048
     Dates: start: 20200228
  6. CALCIUM ACETATE, PHOSPHAT BIND, (PHOSLO) [Concomitant]
     Indication: Sickle cell disease
     Route: 048
     Dates: start: 20200228
  7. VITAMIN D3 [Concomitant]
     Active Substance: CHOLECALCIFEROL
     Indication: Vitamin D
     Route: 048
     Dates: start: 20200520
  8. CELEXA [Concomitant]
     Active Substance: CITALOPRAM HYDROBROMIDE
     Indication: Pain
     Route: 048
     Dates: start: 20181130
  9. DOXAZOSIN (CARDURA) [Concomitant]
     Indication: Product used for unknown indication
     Route: 048
     Dates: start: 20200228
  10. FOLIC ACID (FOLVITE) TABLET [Concomitant]
     Indication: Sickle cell disease
     Route: 048
     Dates: start: 20180323
  11. HYDRALAZINE (APRESOLINE) [Concomitant]
     Indication: Product used for unknown indication
     Route: 048
     Dates: start: 20201109
  12. PACKED RED BLOOD CELLS (PRBC) TRANSFUSION [Concomitant]
     Indication: Sickle cell disease
     Dosage: 1 UNIT
     Dates: start: 20201101, end: 20201101
  13. PACKED RED BLOOD CELLS (PRBC) TRANSFUSION [Concomitant]
     Dosage: 2 UNITS
     Dates: start: 20210312, end: 20210312
  14. PACKED RED BLOOD CELLS (PRBC) TRANSFUSION [Concomitant]
     Dosage: 2 UNITS
     Dates: start: 20210618, end: 20210618

REACTIONS (1)
  - Renal failure [Recovered/Resolved]

NARRATIVE: CASE EVENT DATE: 20210210
